FAERS Safety Report 9405192 (Version 1)
Quarter: 2013Q3

REPORT INFORMATION
  Report Type: Spontaneous
  Country: US (occurrence: US)
  Receive Date: 20130717
  Receipt Date: 20130717
  Transmission Date: 20140515
  Serious: Yes (Other)
  Sender: FDA-Public Use
  Company Number: US-PFIZER INC-2013209269

PATIENT
  Sex: Female
  Weight: 65.76 kg

DRUGS (2)
  1. EFFEXOR XR [Suspect]
     Indication: ANXIETY
     Dosage: 75 MG, DAILY
     Dates: start: 1999
  2. EFFEXOR XR [Suspect]
     Indication: HOT FLUSH
     Dosage: UNK

REACTIONS (4)
  - Breast cancer female [Unknown]
  - Uterine disorder [Unknown]
  - Pre-existing condition improved [Unknown]
  - Therapeutic response unexpected [Unknown]
